FAERS Safety Report 20696617 (Version 2)
Quarter: 2022Q2

REPORT INFORMATION
  Report Type: Other
  Country: TR (occurrence: None)
  Receive Date: 20220411
  Receipt Date: 20220413
  Transmission Date: 20220720
  Serious: No
  Sender: FDA-Public Use
  Company Number: TR-ROCHE-3073158

PATIENT
  Age: 31 Year
  Sex: Male
  Weight: 72 kg

DRUGS (3)
  1. OCRELIZUMAB [Suspect]
     Active Substance: OCRELIZUMAB
     Indication: Relapsing-remitting multiple sclerosis
     Route: 042
     Dates: start: 20210217
  2. SOLGAR VITAMIN D3 [Concomitant]
     Indication: Prophylaxis
     Route: 048
     Dates: start: 20211025
  3. BENEXOL B1 B6 B12 [CYANOCOBALAMIN;PYRIDOXINE HYDROCHLORIDE;THIAMINE HY [Concomitant]
     Indication: Prophylaxis
     Route: 048
     Dates: start: 20211025

REACTIONS (1)
  - COVID-19 [Recovered/Resolved]

NARRATIVE: CASE EVENT DATE: 20211230
